FAERS Safety Report 13235839 (Version 6)
Quarter: 2020Q1

REPORT INFORMATION
  Report Type: Spontaneous
  Country: US (occurrence: US)
  Receive Date: 20170215
  Receipt Date: 20200114
  Transmission Date: 20200409
  Serious: No
  Sender: FDA-Public Use
  Company Number: US-PFIZER INC-2017059345

PATIENT
  Age: 57 Year
  Sex: Female

DRUGS (7)
  1. FLECTOR [Suspect]
     Active Substance: DICLOFENAC EPOLAMINE
     Indication: PAIN
     Dosage: 1.3 %, 2X/DAY
     Route: 062
     Dates: start: 20171026
  2. FLECTOR [Suspect]
     Active Substance: DICLOFENAC EPOLAMINE
     Dosage: UNK, 2X/DAY(ONCE EVERY 12 HOURS)
     Route: 062
     Dates: start: 20181231
  3. FLECTOR [Suspect]
     Active Substance: DICLOFENAC EPOLAMINE
     Indication: LUMBAR RADICULOPATHY
     Dosage: UNK
     Dates: start: 2016
  4. FLECTOR [Suspect]
     Active Substance: DICLOFENAC EPOLAMINE
     Indication: INFLAMMATION
     Dosage: UNK, 1X/DAY
  5. FLECTOR [Suspect]
     Active Substance: DICLOFENAC EPOLAMINE
     Indication: SPINAL STENOSIS
     Dosage: UNK
     Dates: start: 2006
  6. FLECTOR [Suspect]
     Active Substance: DICLOFENAC EPOLAMINE
     Indication: INTERVERTEBRAL DISC PROTRUSION
     Dosage: UNK , 2X/DAY
     Dates: start: 2011, end: 2012
  7. FLECTOR [Suspect]
     Active Substance: DICLOFENAC EPOLAMINE
     Indication: OSTEOARTHRITIS
     Dosage: UNK
     Dates: start: 2014, end: 2015

REACTIONS (5)
  - Memory impairment [Unknown]
  - Product use in unapproved indication [Unknown]
  - Therapeutic product effect incomplete [Recovered/Resolved]
  - Musculoskeletal discomfort [Unknown]
  - Off label use [Unknown]

NARRATIVE: CASE EVENT DATE: 2006
